FAERS Safety Report 4393208-5 (Version None)
Quarter: 2004Q3

REPORT INFORMATION
  Report Type: 
  Country: None (occurrence: None)
  Receive Date: 20040702
  Receipt Date: 20040616
  Transmission Date: 20050211
  Serious: Yes (Hospitalization)
  Sender: FDA-Public Use
  Company Number: 2004AP02308

PATIENT
  Age: 54 Year
  Sex: Male

DRUGS (6)
  1. IRESSA [Suspect]
     Indication: NON-SMALL CELL LUNG CANCER
     Dosage: 250 MG DAILY PO
     Route: 048
     Dates: start: 20040305, end: 20040412
  2. IRESSA [Suspect]
     Indication: NON-SMALL CELL LUNG CANCER
     Dosage: 250 MG DAILY PO
     Route: 048
     Dates: start: 20040426
  3. CISPLATIN [Concomitant]
  4. GEMCITABINE [Concomitant]
  5. VINORELBINE TARTRATE [Concomitant]
  6. RADIOTHERAPY [Concomitant]

REACTIONS (4)
  - ASPIRATION [None]
  - BRONCHITIS [None]
  - CONDITION AGGRAVATED [None]
  - PULMONARY HAEMORRHAGE [None]
